FAERS Safety Report 25928307 (Version 1)
Quarter: 2025Q4

REPORT INFORMATION
  Report Type: Spontaneous
  Country: CA (occurrence: CA)
  Receive Date: 20251016
  Receipt Date: 20251016
  Transmission Date: 20260119
  Serious: Yes (Other)
  Sender: CELLTRION
  Company Number: CA-CELLTRION INC.-2025CA037009

PATIENT

DRUGS (9)
  1. INFLIXIMAB [Suspect]
     Active Substance: INFLIXIMAB
     Indication: Colitis ulcerative
     Dosage: 650 MILLIGRAM
     Route: 042
  2. INFLIXIMAB [Suspect]
     Active Substance: INFLIXIMAB
     Dosage: 650 MILLIGRAM
     Route: 042
  3. INFLIXIMAB [Suspect]
     Active Substance: INFLIXIMAB
     Dosage: 600 MILLIGRAM
     Route: 042
  4. INFLIXIMAB [Suspect]
     Active Substance: INFLIXIMAB
     Dosage: 650 MILLIGRAM
     Route: 042
  5. INFLIXIMAB [Suspect]
     Active Substance: INFLIXIMAB
     Dosage: 600 MILLIGRAM
     Route: 042
  6. INFLIXIMAB [Suspect]
     Active Substance: INFLIXIMAB
     Dosage: 600 MILLIGRAM
     Route: 042
  7. AZATHIOPRINE [Concomitant]
     Active Substance: AZATHIOPRINE
  8. PREDNISONE [Concomitant]
     Active Substance: PREDNISONE
  9. SULFASALAZINE [Concomitant]
     Active Substance: SULFASALAZINE

REACTIONS (6)
  - Condition aggravated [Not Recovered/Not Resolved]
  - Weight loss diet [Not Recovered/Not Resolved]
  - Psoriasis [Not Recovered/Not Resolved]
  - Skin infection [Not Recovered/Not Resolved]
  - Overdose [Unknown]
  - Underdose [Unknown]
